FAERS Safety Report 7510514-3 (Version None)
Quarter: 2011Q2

REPORT INFORMATION
  Report Type: 
  Country: None (occurrence: None)
  Receive Date: 20110529
  Receipt Date: 20110520
  Transmission Date: 20111010
  Serious: Yes (Death, Hospitalization)
  Sender: FDA-Public Use
  Company Number: IT-BRISTOL-MYERS SQUIBB COMPANY-15411978

PATIENT
  Age: 76 Year
  Sex: Female

DRUGS (1)
  1. ERBITUX [Suspect]
     Indication: TONGUE NEOPLASM MALIGNANT STAGE UNSPECIFIED
     Dosage: FIRST DOSE : ERBITUX 400MG/M2: 03SEP2010, ERBITUX 250MG/M2 RECENT: 15OCT2010
     Route: 042
     Dates: end: 20101015

REACTIONS (1)
  - INTESTINAL ISCHAEMIA [None]
